FAERS Safety Report 7052215-4 (Version None)
Quarter: 2010Q4

REPORT INFORMATION
  Report Type: 
  Country: None (occurrence: None)
  Receive Date: 20101013
  Receipt Date: 20100928
  Transmission Date: 20110411
  Serious: Yes (Hospitalization, Other)
  Sender: FDA-Public Use
  Company Number: 2010-00982

PATIENT
  Age: 62 Year
  Sex: Female

DRUGS (7)
  1. SIMVASTATIN [Suspect]
     Indication: HYPERCHOLESTEROLAEMIA
     Dosage: 40 MG
     Dates: end: 20100915
  2. FUSIDIC ACID [Suspect]
     Indication: OSTEOMYELITIS
     Dosage: 500 MG, ORAL
     Route: 048
     Dates: end: 20100915
  3. FLUCLOXACILLIN (UNKNOWN) [Concomitant]
  4. INDOMETHACIN (UNKNOWN) [Concomitant]
  5. OMEPRAZOLE [Concomitant]
  6. PARACETAMOL (UNKNOWN) [Concomitant]
  7. TRAMADOL HYDROCHLORIDE (UNKNOWN) [Concomitant]

REACTIONS (5)
  - LIVER FUNCTION TEST ABNORMAL [None]
  - MUSCULAR WEAKNESS [None]
  - MYOSITIS [None]
  - OSTEOMYELITIS [None]
  - PAIN IN EXTREMITY [None]
